FAERS Safety Report 9928451 (Version 2)
Quarter: 2014Q1

REPORT INFORMATION
  Report Type: Spontaneous
  Country: JP (occurrence: JP)
  Receive Date: 20140227
  Receipt Date: 20140227
  Transmission Date: 20141002
  Serious: Yes (Death)
  Sender: FDA-Public Use
  Company Number: JP-ASTELLAS-2014JP001309

PATIENT
  Age: 70 Year
  Sex: Male

DRUGS (6)
  1. FUNGUARD [Suspect]
     Indication: FUNGAL INFECTION
     Dosage: 50 MG, UNKNOWN/D
     Route: 041
     Dates: start: 20140127, end: 20140131
  2. OMEPRAZOLE                         /00661202/ [Concomitant]
     Dosage: 40 MG, UNKNOWN/D
     Route: 042
     Dates: start: 20140127
  3. NOVO PROTAMINE SULFATE [Concomitant]
     Dosage: 50 MG, UNKNOWN/D
     Route: 041
     Dates: start: 20140127
  4. FESIN                              /00023550/ [Concomitant]
     Dosage: 80 MG, UNKNOWN/D
     Route: 041
     Dates: start: 20140122
  5. SIGMART [Concomitant]
     Dosage: 48 MG, UNKNOWN/D
     Route: 065
     Dates: start: 20140122
  6. HEPARIN [Concomitant]
     Dosage: 10000 IU, UNKNOWN/D
     Route: 065
     Dates: start: 20140130, end: 20140201

REACTIONS (1)
  - Activated partial thromboplastin time prolonged [Fatal]
